FAERS Safety Report 4660660-7 (Version None)
Quarter: 2005Q2

REPORT INFORMATION
  Report Type: 
  Country: None (occurrence: None)
  Receive Date: 20050512
  Receipt Date: 20050504
  Transmission Date: 20051028
  Serious: Yes (Hospitalization)
  Sender: FDA-Public Use
  Company Number: HK-ABBOTT-05P-075-0300130-00

PATIENT
  Age: 15 Year
  Sex: Male

DRUGS (14)
  1. VALPROATE SODIUM [Suspect]
     Indication: CONVULSION
  2. VALPROATE SODIUM [Suspect]
  3. VALPROATE SODIUM [Suspect]
  4. VALPROATE SODIUM [Suspect]
  5. VALPROATE SODIUM [Suspect]
  6. VALPROATE SODIUM [Suspect]
  7. VALPROATE SODIUM [Suspect]
  8. TOPIRAMATE [Suspect]
     Indication: CONVULSION
  9. TOPIRAMATE [Suspect]
  10. CLOBAZAM [Concomitant]
     Indication: CONVULSION
     Dosage: NOT REPORTED
  11. PHENYTOIN [Concomitant]
     Indication: DRUG USE FOR UNKNOWN INDICATION
     Dosage: NOT REPORTED
     Route: 042
  12. PHENYTOIN [Concomitant]
     Dosage: NOT REPORTED
     Route: 042
  13. LORAZEPAM [Concomitant]
     Indication: DRUG USE FOR UNKNOWN INDICATION
     Dosage: NOT REPORTED
     Route: 042
  14. OXCARBAZEPINE [Concomitant]
     Indication: DRUG USE FOR UNKNOWN INDICATION
     Dosage: NOT REPORTED

REACTIONS (3)
  - CONVULSION [None]
  - ENCEPHALOPATHY [None]
  - HYPERAMMONAEMIA [None]
